FAERS Safety Report 6361689-3 (Version None)
Quarter: 2009Q3

REPORT INFORMATION
  Report Type: 
  Country: None (occurrence: None)
  Receive Date: 20090918
  Receipt Date: 20090810
  Transmission Date: 20100115
  Serious: Yes (Hospitalization)
  Sender: FDA-Public Use
  Company Number: CH-ASTRAZENECA-2009SE12912

PATIENT
  Age: 63 Year
  Sex: Male

DRUGS (6)
  1. NEXIUM [Suspect]
     Route: 048
  2. CERTICAN [Suspect]
     Route: 048
     Dates: start: 20090625
  3. PREDNISON [Concomitant]
     Route: 048
     Dates: start: 20080901
  4. CELLCEPT [Concomitant]
     Route: 048
     Dates: start: 20080901
  5. LEVEMIR [Concomitant]
  6. NOVORAPID [Concomitant]

REACTIONS (1)
  - LIVER INJURY [None]
